FAERS Safety Report 5918047-2 (Version None)
Quarter: 2008Q4

REPORT INFORMATION
  Report Type: 
  Country: None (occurrence: None)
  Receive Date: 20081014
  Receipt Date: 20081002
  Transmission Date: 20090506
  Serious: Yes (Other)
  Sender: FDA-Public Use
  Company Number: US-PFIZER INC-2008083490

PATIENT
  Sex: Male
  Weight: 53.5 kg

DRUGS (3)
  1. ZOLOFT [Suspect]
     Indication: DEPRESSION
     Dates: start: 20080925
  2. ZOLOFT [Suspect]
     Indication: SUICIDAL IDEATION
  3. HYPNOTICS AND SEDATIVES [Concomitant]

REACTIONS (6)
  - CRYING [None]
  - FEELING ABNORMAL [None]
  - HALLUCINATION, VISUAL [None]
  - MEMORY IMPAIRMENT [None]
  - NERVOUSNESS [None]
  - VISUAL IMPAIRMENT [None]
